FAERS Safety Report 7290417-2 (Version None)
Quarter: 2011Q1

REPORT INFORMATION
  Report Type: 
  Country: None (occurrence: None)
  Receive Date: 20110214
  Receipt Date: 20110204
  Transmission Date: 20110831
  Serious: Yes (Other)
  Sender: FDA-Public Use
  Company Number: US-JNJFOC-20110202637

PATIENT
  Sex: Female
  Weight: 63.5 kg

DRUGS (1)
  1. ORTHO EVRA [Suspect]
     Indication: CONTRACEPTION
     Route: 062

REACTIONS (6)
  - APPLICATION SITE RASH [None]
  - HEADACHE [None]
  - DYSPNOEA [None]
  - VOMITING [None]
  - SPEECH DISORDER [None]
  - ABDOMINAL PAIN UPPER [None]
